FAERS Safety Report 17043904 (Version 1)
Quarter: 2019Q4

REPORT INFORMATION
  Report Type: Spontaneous
  Country: US (occurrence: US)
  Receive Date: 20191115
  Receipt Date: 20191115
  Transmission Date: 20200122
  Serious: Yes (Other)
  Sender: FDA-Public Use
  Company Number: None

PATIENT
  Age: 25 Year
  Sex: Female
  Weight: 76.5 kg

DRUGS (1)
  1. CLARIFYING CLEANSER [Suspect]
     Active Substance: SALICYLIC ACID
     Route: 061
     Dates: start: 20191030, end: 20191104

REACTIONS (1)
  - Burning sensation [None]

NARRATIVE: CASE EVENT DATE: 20191101
